FAERS Safety Report 10235827 (Version 1)
Quarter: 2014Q1

REPORT INFORMATION
  Report Type: Spontaneous
  Country: US (occurrence: None)
  Receive Date: 20140306
  Receipt Date: 20140306
  Transmission Date: 20141002
  Serious: Yes (Other)
  Sender: FDA-Public Use
  Company Number: 163-21880-13023616

PATIENT
  Age: 87 Year
  Sex: Female
  Weight: 40.82 kg

DRUGS (9)
  1. REVLIMID [Suspect]
     Indication: MYELODYSPLASTIC SYNDROME
     Dosage: 1.4286 MG, 2 IN 1 WK,PO
     Route: 048
     Dates: start: 20120101
  2. ARANESP(DARBEPOETIN ALFA) [Concomitant]
  3. ARTHOROTEC(ARTHROTEC) [Concomitant]
  4. BABY ASPIRIN(ACTYLSALICYLIC ACID)(TABLETS) [Concomitant]
  5. EXJADE(DEFERASIROX)(TABLETS) [Concomitant]
  6. FOLIC ACID(FOLIC ACID)(TABLETS) [Concomitant]
  7. LIQUID B12(LIQUID) [Concomitant]
  8. TRAMADOL HCL (TRAMADOL HYDROCHLORIDE) [Concomitant]
  9. VITAMIN B12 (CYANOCOBALAMIN)(UKNOWN) [Concomitant]

REACTIONS (3)
  - Nail disorder [None]
  - Hypoaesthesia [None]
  - Local swelling [None]
